FAERS Safety Report 25866763 (Version 2)
Quarter: 2025Q4

REPORT INFORMATION
  Report Type: Report from Study
  Country: CA (occurrence: CA)
  Receive Date: 20250930
  Receipt Date: 20251029
  Transmission Date: 20260118
  Serious: Yes (Other)
  Sender: ABBVIE
  Company Number: CA-ABBVIE-6477023

PATIENT
  Age: 38 Year
  Sex: Female

DRUGS (1)
  1. SKYRIZI [Suspect]
     Active Substance: RISANKIZUMAB-RZAA
     Indication: Psoriasis
     Dosage: SOLUTION FOR INJECTION IN PRE-FILLED PEN
     Route: 058

REACTIONS (25)
  - Retinal tear [Recovering/Resolving]
  - Eye inflammation [Recovered/Resolved]
  - Eye inflammation [Recovered/Resolved]
  - Foreign body sensation in eyes [Unknown]
  - Tendon pain [Unknown]
  - Muscle tightness [Unknown]
  - Arthralgia [Unknown]
  - Peripheral swelling [Unknown]
  - Pain in extremity [Unknown]
  - Psoriasis [Unknown]
  - Stomatitis [Recovered/Resolved]
  - Pain [Unknown]
  - Mucosal ulceration [Unknown]
  - Rash [Unknown]
  - Sicca syndrome [Unknown]
  - Vision blurred [Unknown]
  - Ocular hyperaemia [Unknown]
  - Photophobia [Unknown]
  - Poor quality sleep [Unknown]
  - Depressed mood [Unknown]
  - Memory impairment [Unknown]
  - Abdominal pain [Recovered/Resolved]
  - Dysphagia [Unknown]
  - Cholelithiasis [Unknown]
  - Eye pain [Unknown]

NARRATIVE: CASE EVENT DATE: 20240101
